FAERS Safety Report 6448898-X (Version None)
Quarter: 2009Q4

REPORT INFORMATION
  Report Type: 
  Country: None (occurrence: None)
  Receive Date: 20091120
  Receipt Date: 20091029
  Transmission Date: 20100525
  Serious: No
  Sender: FDA-Public Use
  Company Number: US-SANOFI-AVENTIS-2009SA000592

PATIENT
  Sex: Male

DRUGS (2)
  1. SOLOSTAR [Suspect]
     Dosage: DOSE:31 UNIT(S)
     Route: 058
     Dates: start: 20060101
  2. LANTUS [Suspect]
     Dosage: DOSE:31 UNIT(S)
     Route: 058
     Dates: start: 20060101

REACTIONS (1)
  - BLOOD GLUCOSE INCREASED [None]
